FAERS Safety Report 20189411 (Version 1)
Quarter: 2021Q4

REPORT INFORMATION
  Report Type: Spontaneous
  Country: IE (occurrence: IE)
  Receive Date: 20211215
  Receipt Date: 20211215
  Transmission Date: 20220303
  Serious: Yes (Hospitalization)
  Sender: FDA-Public Use
  Company Number: None

PATIENT
  Age: 62 Year
  Sex: Male
  Weight: 110 kg

DRUGS (4)
  1. APIXABAN [Suspect]
     Active Substance: APIXABAN
     Indication: Deep vein thrombosis
     Dosage: 10MG, 12 HOURS  FOR 7 DAYS. DISCONTINUED AFTER 7 DAYS
     Route: 065
     Dates: start: 202108
  2. AMLODIPINE BESYLATE\OLMESARTAN MEDOXOMIL [Concomitant]
     Active Substance: AMLODIPINE BESYLATE\OLMESARTAN MEDOXOMIL
     Indication: Hypertension
     Dosage: 20/5MG
     Route: 048
  3. altavitaD3 Capsules, Soft 25,000 International [Concomitant]
     Indication: Vitamin D decreased
     Dosage: 25000 INTERNATIONAL UNIT, QMO
     Route: 048
     Dates: start: 202102
  4. HEPARIN (GENERIC) [Concomitant]
     Indication: Product used for unknown indication
     Dosage: POSSIBLY 100MG BY INJECTION TO THE STOMACH REGION TWICE DAILY
     Route: 065
     Dates: start: 20210818, end: 20210820

REACTIONS (3)
  - Pruritus [Recovered/Resolved]
  - Blood blister [Recovered/Resolved]
  - Rash macular [Recovered/Resolved]

NARRATIVE: CASE EVENT DATE: 20210801
